FAERS Safety Report 6642546-1 (Version None)
Quarter: 2010Q1

REPORT INFORMATION
  Report Type: 
  Country: None (occurrence: None)
  Receive Date: 20100319
  Receipt Date: 20100302
  Transmission Date: 20100710
  Serious: No
  Sender: FDA-Public Use
  Company Number: B0607805A

PATIENT
  Sex: Female

DRUGS (1)
  1. RELENZA [Suspect]
     Indication: INFLUENZA
     Route: 055
     Dates: start: 20091109

REACTIONS (4)
  - CHILLS [None]
  - DELIVERY [None]
  - DRUG EXPOSURE DURING PREGNANCY [None]
  - OROPHARYNGEAL PAIN [None]
